FAERS Safety Report 9197988 (Version 3)
Quarter: 2013Q4

REPORT INFORMATION
  Report Type: Spontaneous
  Country: US (occurrence: US)
  Receive Date: 20130328
  Receipt Date: 20131017
  Transmission Date: 20140711
  Serious: Yes (Hospitalization)
  Sender: FDA-Public Use
  Company Number: US-B.I. PHARMACEUTICALS,INC./RIDGEFIELD-2013-BI-07888BP

PATIENT
  Sex: Female
  Weight: 74.84 kg

DRUGS (21)
  1. PRADAXA [Suspect]
     Indication: ATRIAL FIBRILLATION
     Dosage: 300 MG
     Route: 048
     Dates: start: 20101209, end: 20110808
  2. TRAMADOL [Concomitant]
  3. FUROSEMIDE [Concomitant]
     Dosage: 160 MG
  4. COREG [Concomitant]
     Dosage: 6.25 MG
  5. LISINOPRIL [Concomitant]
     Dosage: 5 MG
  6. ASPIRIN [Concomitant]
     Indication: CORONARY ARTERY DISEASE
     Dosage: 81 MG
  7. ASPIRIN [Concomitant]
     Indication: ATRIAL FIBRILLATION
  8. BUPROPION SR [Concomitant]
     Dosage: 150 MG
  9. VYTORIN [Concomitant]
     Indication: DYSLIPIDAEMIA
  10. GABAPENTIN [Concomitant]
     Dosage: 1600 MG
  11. LANOXIN [Concomitant]
     Dosage: 0.125 MG
  12. FENOFIBRATE [Concomitant]
     Dosage: 160 MG
  13. NEXIUM [Concomitant]
     Dosage: 40 MG
  14. MULTIVITAMIN [Concomitant]
  15. NYSTATIN [Concomitant]
  16. PULMICORT [Concomitant]
  17. DUONEB [Concomitant]
  18. LEVEMIR [Concomitant]
  19. NOVOLOG [Concomitant]
  20. OXYGEN [Concomitant]
     Route: 045
  21. PLAVIX [Concomitant]
     Indication: CORONARY ARTERY DISEASE

REACTIONS (2)
  - Lower gastrointestinal haemorrhage [Recovered/Resolved]
  - Coagulopathy [Unknown]
